FAERS Safety Report 10196505 (Version 1)
Quarter: 2014Q2

REPORT INFORMATION
  Report Type: Spontaneous
  Country: AU (occurrence: AU)
  Receive Date: 20140527
  Receipt Date: 20140527
  Transmission Date: 20141212
  Serious: Yes (Life-Threatening, Hospitalization, Other)
  Sender: FDA-Public Use
  Company Number: AU-JNJFOC-20140513287

PATIENT
  Age: 75 Year
  Sex: Male

DRUGS (9)
  1. RIVAROXABAN [Suspect]
     Indication: ATRIAL FIBRILLATION
     Route: 048
  2. PARACETAMOL [Suspect]
     Route: 048
  3. PARACETAMOL [Suspect]
     Indication: ANGINA PECTORIS
     Route: 048
  4. IBUPROFEN [Suspect]
     Indication: ANGINA PECTORIS
     Dosage: TID AND PRN
     Route: 048
  5. ACETYLSALICYLIC ACID [Suspect]
     Indication: MYOCARDIAL INFARCTION
     Dosage: LOADING DOSE
     Route: 048
  6. ACETYLSALICYLIC ACID [Suspect]
     Indication: MYOCARDIAL INFARCTION
     Route: 048
  7. TICAGRELOR [Suspect]
     Indication: MYOCARDIAL INFARCTION
     Route: 065
  8. TICAGRELOR [Suspect]
     Indication: MYOCARDIAL INFARCTION
     Dosage: LOADING DOSE
     Route: 065
  9. METOPROLOL [Concomitant]
     Route: 065

REACTIONS (4)
  - Pericardial haemorrhage [Recovered/Resolved]
  - Pericardial haemorrhage [Recovered/Resolved]
  - Ischaemic hepatitis [Recovered/Resolved]
  - Coagulopathy [Recovered/Resolved]
